FAERS Safety Report 19248994 (Version 2)
Quarter: 2021Q2

REPORT INFORMATION
  Report Type: Report from Study
  Country: US (occurrence: US)
  Receive Date: 20210512
  Receipt Date: 20210621
  Transmission Date: 20210717
  Serious: Yes (Hospitalization, Other)
  Sender: FDA-Public Use
  Company Number: US-SHIRE-US201918476AA

PATIENT
  Sex: Male

DRUGS (1)
  1. CUVITRU [Suspect]
     Active Substance: HUMAN IMMUNOGLOBULIN G
     Indication: PRIMARY IMMUNODEFICIENCY SYNDROME
     Dosage: UNK
     Route: 065

REACTIONS (8)
  - Back disorder [Unknown]
  - Sinusitis [Unknown]
  - Medical device implantation [Unknown]
  - Hypoacusis [Unknown]
  - General physical health deterioration [Unknown]
  - Infusion related reaction [Unknown]
  - Sleep apnoea syndrome [Unknown]
  - Heart rate increased [Unknown]
